FAERS Safety Report 5991115-5 (Version None)
Quarter: 2008Q4

REPORT INFORMATION
  Report Type: 
  Country: None (occurrence: None)
  Receive Date: 20081202
  Receipt Date: 20071108
  Transmission Date: 20090506
  Serious: Yes (Other)
  Sender: FDA-Public Use
  Company Number: WAES 0704USA04187

PATIENT
  Age: 75 Year
  Sex: Female
  Weight: 48.9885 kg

DRUGS (3)
  1. FOSAMAX [Suspect]
     Indication: OSTEOPOROSIS
     Dosage: 70 MG/WKY/PO
     Route: 048
     Dates: start: 20010821, end: 20041230
  2. ATROVENT [Concomitant]
  3. ALBUTEROL SULATE [Concomitant]

REACTIONS (4)
  - DEPRESSION [None]
  - FALL [None]
  - OSTEONECROSIS [None]
  - WRIST FRACTURE [None]
